FAERS Safety Report 5775393-3 (Version None)
Quarter: 2008Q2

REPORT INFORMATION
  Report Type: 
  Country: None (occurrence: None)
  Receive Date: 20080613
  Receipt Date: 20080530
  Transmission Date: 20081010
  Serious: Yes (Hospitalization, Other)
  Sender: FDA-Public Use
  Company Number: 0550013

PATIENT
  Age: 68 Year
  Sex: Male
  Weight: 76.6579 kg

DRUGS (13)
  1. CAP VORINOSTAT UNK [Suspect]
     Indication: MYELODYSPLASTIC SYNDROME
     Dosage: 400 MG/DAILY/PO
     Route: 048
     Dates: start: 20080129, end: 20080211
  2. CAP VORINOSTAT UNK [Suspect]
     Indication: MYELODYSPLASTIC SYNDROME
     Dosage: 400 MG/DAILY/PO
     Route: 048
     Dates: start: 20080229, end: 20080313
  3. CAP VORINOSTAT UNK [Suspect]
     Indication: MYELODYSPLASTIC SYNDROME
     Dosage: 400 MG/DAILY/PO
     Route: 048
     Dates: start: 20080409, end: 20080422
  4. CAP VORINOSTAT UNK [Suspect]
     Indication: MYELODYSPLASTIC SYNDROME
     Dosage: 400 MG/DAILY/PO
     Route: 048
     Dates: start: 20080520
  5. ASCORBIC ACID [Concomitant]
  6. CYANOCOBALAMIN [Concomitant]
  7. INFUSION (FORM) DECITABINE UNK [Suspect]
     Indication: MYELODYSPLASTIC SYNDROME
     Dosage: 39 MG/DAILY/IV
     Route: 042
     Dates: start: 20080129, end: 20080202
  8. INFUSION (FORM) DECITABINE UNK [Suspect]
     Indication: MYELODYSPLASTIC SYNDROME
     Dosage: 39 MG/DAILY/IV
     Route: 042
     Dates: start: 20080229, end: 20080303
  9. INFUSION (FORM) DECITABINE UNK [Suspect]
     Indication: MYELODYSPLASTIC SYNDROME
     Dosage: 39 MG/DAILY/IV
     Route: 042
     Dates: start: 20080409, end: 20080413
  10. INFUSION (FORM) DECITABINE UNK [Suspect]
     Indication: MYELODYSPLASTIC SYNDROME
     Dosage: 39 MG/DAILY/IV
     Route: 042
     Dates: start: 20080520, end: 20080524
  11. FOLIC ACID [Concomitant]
  12. GARLIC [Concomitant]
  13. MULTI-VITAMINS [Concomitant]

REACTIONS (9)
  - CHILLS [None]
  - CONSTIPATION [None]
  - FEBRILE NEUTROPENIA [None]
  - HEADACHE [None]
  - INSOMNIA [None]
  - NEUTROPENIA [None]
  - PHARYNGOLARYNGEAL PAIN [None]
  - PLEURAL EFFUSION [None]
  - RHINORRHOEA [None]
